FAERS Safety Report 8131192-9 (Version None)
Quarter: 2012Q1

REPORT INFORMATION
  Report Type: 
  Country: None (occurrence: None)
  Receive Date: 20120103
  Receipt Date: 20110203
  Transmission Date: 20120608
  Serious: Yes (Other)
  Sender: FDA-Public Use
  Company Number: 016

PATIENT
  Age: 77 Year
  Sex: Female

DRUGS (2)
  1. BACITRACIN OPHTHALMIC OINTMENT [Suspect]
     Dates: start: 20110130
  2. BACITRACIN OPHTHALMIC OINTMENT [Suspect]
     Dates: start: 20110128

REACTIONS (2)
  - EYE IRRITATION [None]
  - OCULAR HYPERAEMIA [None]
